FAERS Safety Report 6484667-2 (Version None)
Quarter: 2009Q4

REPORT INFORMATION
  Report Type: 
  Country: None (occurrence: None)
  Receive Date: 20091209
  Receipt Date: 20091126
  Transmission Date: 20100525
  Serious: Yes (Other)
  Sender: FDA-Public Use
  Company Number: GR-JNJCH-2009028625

PATIENT
  Age: 65 Year
  Sex: Female

DRUGS (3)
  1. REGAINE 2% [Suspect]
     Indication: ALOPECIA
     Dosage: TEXT:UNSPECIFIED
     Route: 061
     Dates: start: 20090201, end: 20091001
  2. CORTISONE [Suspect]
     Indication: ALOPECIA
     Dosage: TEXT:UNSPECIFIED
     Route: 061
     Dates: start: 20090201, end: 20091001
  3. ALL OTHER THERAPEUTIC PRODUCTS [Suspect]
     Indication: ALOPECIA
     Dosage: TEXT:UNSPECIFIED
     Route: 061
     Dates: start: 20090201, end: 20091001

REACTIONS (2)
  - LUPUS-LIKE SYNDROME [None]
  - WRONG TECHNIQUE IN DRUG USAGE PROCESS [None]
